FAERS Safety Report 14664751 (Version 6)
Quarter: 2019Q3

REPORT INFORMATION
  Report Type: Spontaneous
  Country: JP (occurrence: JP)
  Receive Date: 20180321
  Receipt Date: 20190925
  Transmission Date: 20191004
  Serious: Yes (Hospitalization)
  Sender: FDA-Public Use
  Company Number: JP-ACTELION-A-CH2018-169453

PATIENT
  Age: 77 Year
  Sex: Female
  Weight: 43.1 kg

DRUGS (22)
  1. UPTRAVI [Suspect]
     Active Substance: SELEXIPAG
     Dosage: 0.2 MG, BID
     Route: 048
     Dates: start: 20170426, end: 20170514
  2. UPTRAVI [Suspect]
     Active Substance: SELEXIPAG
     Dosage: 0.8 MG, BID
     Route: 048
     Dates: start: 20171129, end: 20180129
  3. SAMSCA [Concomitant]
     Active Substance: TOLVAPTAN
     Indication: RIGHT VENTRICULAR FAILURE
  4. SELARA [Concomitant]
     Active Substance: EPLERENONE
  5. UPTRAVI [Suspect]
     Active Substance: SELEXIPAG
     Indication: PULMONARY HYPERTENSION
     Dosage: 0.2 MG, QD
     Route: 048
     Dates: start: 20170327, end: 20170425
  6. UPTRAVI [Suspect]
     Active Substance: SELEXIPAG
     Dosage: 0.6 MG, QD
     Route: 048
     Dates: start: 20170515, end: 20170618
  7. UPTRAVI [Suspect]
     Active Substance: SELEXIPAG
     Dosage: 0.6 MG, BID
     Route: 048
     Dates: start: 20170814, end: 20170918
  8. FUROSEMIDE. [Concomitant]
     Active Substance: FUROSEMIDE
     Dosage: 10 MG, QD
     Dates: start: 20170909, end: 20170915
  9. CEFTRIAXONE SODIUM SESQUATERHYDRATE [Concomitant]
     Active Substance: CEFTRIAXONE SODIUM
     Dosage: 1 G, QD
     Dates: start: 20170828, end: 20170904
  10. UPTRAVI [Suspect]
     Active Substance: SELEXIPAG
     Dosage: 1.8 MG, QD
     Route: 048
     Dates: start: 20180130
  11. UPTRAVI [Suspect]
     Active Substance: SELEXIPAG
     Dosage: 0.4 MG, BID
     Route: 048
     Dates: start: 20170619, end: 20170702
  12. MINOCYCLINE HYDROCHLORIDE. [Concomitant]
     Active Substance: MINOCYCLINE HYDROCHLORIDE
     Dosage: 200 MG, QD
     Dates: start: 20170828, end: 20170831
  13. DIART [Concomitant]
     Active Substance: AZOSEMIDE
     Indication: CARDIAC FAILURE
     Dosage: 60 MG, QD
     Dates: start: 20170414, end: 20170830
  14. UPTRAVI [Suspect]
     Active Substance: SELEXIPAG
     Indication: PULMONARY HYPERTENSION
     Dosage: 1.4 MG, QD
     Route: 048
     Dates: start: 20170919, end: 20171128
  15. UPTRAVI [Suspect]
     Active Substance: SELEXIPAG
     Dosage: 1 MG, QD
     Route: 048
     Dates: start: 20170703, end: 20170813
  16. FUROSEMIDE. [Concomitant]
     Active Substance: FUROSEMIDE
     Dosage: 20 MG, QD
     Dates: start: 20170831, end: 20170908
  17. SAMSCA [Concomitant]
     Active Substance: TOLVAPTAN
     Indication: CARDIAC FAILURE
     Dosage: 7.5 MG, QD
     Dates: start: 20170827, end: 20170902
  18. ADCIRCA [Concomitant]
     Active Substance: TADALAFIL
     Indication: PULMONARY HYPERTENSION
     Dosage: 40 MG, QD
     Dates: start: 20160423
  19. OXYGEN. [Concomitant]
     Active Substance: OXYGEN
  20. OPSUMIT [Suspect]
     Active Substance: MACITENTAN
     Indication: PULMONARY HYPERTENSION
     Dosage: 10 MG, QD
     Route: 048
     Dates: start: 20160414
  21. FUROSEMIDE. [Concomitant]
     Active Substance: FUROSEMIDE
     Indication: CARDIAC FAILURE
     Dosage: 40 MG, QD
     Dates: start: 20170327, end: 20170413
  22. WARFARIN [Concomitant]
     Active Substance: WARFARIN
     Indication: POST PROCEDURAL COMPLICATION
     Dosage: 3.5 MG, QD
     Dates: start: 20161004

REACTIONS (16)
  - Oropharyngeal pain [Recovered/Resolved]
  - Pyrexia [Recovered/Resolved]
  - Pneumonia aspiration [Recovered/Resolved]
  - Cardiac failure [Recovering/Resolving]
  - Right ventricular failure [Recovered/Resolved]
  - Orthopnoea [Recovering/Resolving]
  - Dyspnoea [Recovering/Resolving]
  - Dyspnoea at rest [Recovering/Resolving]
  - Concomitant disease aggravated [Recovered/Resolved]
  - Weight increased [Recovering/Resolving]
  - Nasopharyngitis [Unknown]
  - Cardiac failure congestive [Recovering/Resolving]
  - Pneumonia [Recovered/Resolved]
  - Pleural effusion [Recovering/Resolving]
  - Decreased appetite [Unknown]
  - Hypoalbuminaemia [Unknown]

NARRATIVE: CASE EVENT DATE: 20170823
